FAERS Safety Report 9909068 (Version 1)
Quarter: 2014Q1

REPORT INFORMATION
  Report Type: Spontaneous
  Country: JP (occurrence: JP)
  Receive Date: 20140219
  Receipt Date: 20140219
  Transmission Date: 20141002
  Serious: Yes (Other)
  Sender: FDA-Public Use
  Company Number: JP-TEVA-463342ISR

PATIENT
  Age: 35 Year
  Sex: Male

DRUGS (6)
  1. CISPLATIN [Suspect]
     Indication: EXTRASKELETAL OSTEOSARCOMA
     Dosage: FIRST AND SECOND CYCLES
  2. DOXORUBICIN HCL [Suspect]
     Indication: EXTRASKELETAL OSTEOSARCOMA
     Dosage: FIRST AND SECOND CYCLES
  3. DOXORUBICIN HCL [Suspect]
     Dosage: THIRD CYCLE
  4. IFOSFAMIDE [Suspect]
     Indication: EXTRASKELETAL OSTEOSARCOMA
  5. MESNA [Suspect]
     Indication: EXTRASKELETAL OSTEOSARCOMA
  6. CAFFEINE [Suspect]
     Indication: EXTRASKELETAL OSTEOSARCOMA
     Dosage: FIRST AND SECOND CYCLES

REACTIONS (4)
  - Cystitis haemorrhagic [Unknown]
  - Pancytopenia [Unknown]
  - Hepatic enzyme increased [Unknown]
  - Hearing impaired [Unknown]
